FAERS Safety Report 16299522 (Version 1)
Quarter: 2019Q2

REPORT INFORMATION
  Report Type: Spontaneous
  Country: JP (occurrence: JP)
  Receive Date: 20190510
  Receipt Date: 20190510
  Transmission Date: 20190711
  Serious: Yes (Hospitalization, Other)
  Sender: FDA-Public Use
  Company Number: JP-ACCORD-126909

PATIENT
  Age: 74 Year
  Sex: Male
  Weight: 50 kg

DRUGS (8)
  1. DEXAMETHASONE. [Suspect]
     Active Substance: DEXAMETHASONE
     Indication: ANTIEMETIC SUPPORTIVE CARE
     Dosage: DOSE OF DEX FROM 8 MG/D TO 4 MG/D (INTRAVENOUS INJECTION ON DAY 8, ORAL ON DAY 9-11)
     Route: 042
  2. APREPITANT. [Concomitant]
     Active Substance: APREPITANT
     Dosage: 80 MG ON DAY 9 AND DAY 10
  3. APREPITANT. [Concomitant]
     Active Substance: APREPITANT
     Dosage: 80 MG ON DAY 9 AND DAY 10
  4. GIMERACIL/OTERACIL/TEGAFUR [Suspect]
     Active Substance: GIMERACIL\OTERACIL\TEGAFUR
     Indication: GASTRIC CANCER STAGE IV
     Dosage: S-1 (80 MG/D ON DAYS 1-21)
  5. CISPLATIN. [Suspect]
     Active Substance: CISPLATIN
     Indication: GASTRIC CANCER STAGE IV
     Dosage: THE DOSE OF CDDP INCREASED TO 70 MG/D
  6. AZASETRON [Suspect]
     Active Substance: AZASETRON
     Indication: ANTIEMETIC SUPPORTIVE CARE
     Route: 042
  7. MAGNESIUM OXIDE. [Concomitant]
     Active Substance: MAGNESIUM OXIDE
  8. SILODOSIN. [Concomitant]
     Active Substance: SILODOSIN

REACTIONS (5)
  - Nausea [Unknown]
  - Sleep disorder [Unknown]
  - Hiccups [Recovered/Resolved]
  - Loss of personal independence in daily activities [Unknown]
  - Eating disorder [Unknown]
